FAERS Safety Report 17984258 (Version 1)
Quarter: 2020Q3

REPORT INFORMATION
  Report Type: Spontaneous
  Country: US (occurrence: US)
  Receive Date: 20200706
  Receipt Date: 20200706
  Transmission Date: 20201103
  Serious: No
  Sender: FDA-Public Use
  Company Number: US-009507513-2006USA010118

PATIENT
  Age: 37 Year
  Sex: Female

DRUGS (1)
  1. NOXAFIL [Suspect]
     Active Substance: POSACONAZOLE
     Indication: GRANULOMATOUS LYMPHADENITIS
     Dosage: UNK

REACTIONS (1)
  - Product use in unapproved indication [Unknown]
